FAERS Safety Report 18067274 (Version 1)
Quarter: 2020Q3

REPORT INFORMATION
  Report Type: Spontaneous
  Country: NL (occurrence: NL)
  Receive Date: 20200724
  Receipt Date: 20200724
  Transmission Date: 20201103
  Serious: Yes (Other)
  Sender: FDA-Public Use
  Company Number: NL-MYLANLABS-2020M1066146

PATIENT
  Sex: Female
  Weight: 70.3 kg

DRUGS (1)
  1. ETHINYLESTRADIOL/LEVONORGESTREL [Suspect]
     Active Substance: ETHINYL ESTRADIOL\LEVONORGESTREL
     Indication: CONTRACEPTION
     Dosage: 1X PER DAG 1 STUK
     Dates: start: 2003, end: 20190102

REACTIONS (5)
  - Weight increased [Recovered/Resolved]
  - Migraine [Recovered/Resolved]
  - Hepatic adenoma [Recovered/Resolved]
  - Affect lability [Recovered/Resolved]
  - Loss of libido [Recovered/Resolved]
